FAERS Safety Report 7610946-9 (Version None)
Quarter: 2011Q3

REPORT INFORMATION
  Report Type: 
  Country: None (occurrence: None)
  Receive Date: 20110715
  Receipt Date: 20110706
  Transmission Date: 20111222
  Serious: Yes (Life-Threatening, Hospitalization)
  Sender: FDA-Public Use
  Company Number: PHHY2010DE79998

PATIENT
  Sex: Male
  Weight: 64 kg

DRUGS (6)
  1. SIMVASTATIN [Concomitant]
     Indication: LIPID METABOLISM DISORDER
     Dosage: 40 MG, UNK
     Route: 048
  2. RAMIPRIL [Concomitant]
     Indication: HYPERTENSION
     Dosage: 1 DF, BID, ONE TABLET IN MORNING , ONE TABLET IN EVENING
     Route: 048
  3. ANTIARRHYTHMICS, CLASS I AND III [Concomitant]
  4. BISOPROLOL [Concomitant]
     Indication: HYPERTENSION
     Dosage: 1 DF, BID, ONE TABLET IN MORNING , ONE TABLET IN EVENING
     Route: 048
  5. ILARIS [Suspect]
     Indication: CRYOPYRIN ASSOCIATED PERIODIC SYNDROME
     Dosage: 150 MG, ONE INJECTION EVERY 4 WEEKS
     Route: 058
     Dates: start: 20101102
  6. PANTOPRAZOLE SODIUM [Concomitant]
     Indication: PROPHYLAXIS AGAINST GASTROINTESTINAL ULCER
     Dosage: 1 DF, QD, ONE TABLET IN THE MORNING
     Route: 048

REACTIONS (11)
  - ISCHAEMIC CARDIOMYOPATHY [None]
  - ABDOMINAL PAIN [None]
  - ECHOCARDIOGRAM [None]
  - PERICARDIAL EFFUSION [None]
  - FEBRILE INFECTION [None]
  - CORONARY ARTERY DISEASE [None]
  - CARDIAC ARREST [None]
  - VENTRICULAR DYSFUNCTION [None]
  - PALPITATIONS [None]
  - CATHETERISATION CARDIAC [None]
  - VENTRICULAR TACHYCARDIA [None]
